FAERS Safety Report 7545969-1 (Version None)
Quarter: 2011Q2

REPORT INFORMATION
  Report Type: 
  Country: None (occurrence: None)
  Receive Date: 20110614
  Receipt Date: 20110609
  Transmission Date: 20111010
  Serious: Yes (Hospitalization)
  Sender: FDA-Public Use
  Company Number: GB-PFIZER INC-2011127213

PATIENT
  Sex: Female

DRUGS (2)
  1. TOLTERODINE TARTRATE [Suspect]
     Dosage: 4 MG, UNK
  2. SERTRALINE HYDROCHLORIDE [Suspect]
     Dosage: UNK

REACTIONS (1)
  - GASTRIC OPERATION [None]
